FAERS Safety Report 7315633-2 (Version None)
Quarter: 2011Q1

REPORT INFORMATION
  Report Type: 
  Country: None (occurrence: None)
  Receive Date: 20110225
  Receipt Date: 20110211
  Transmission Date: 20110831
  Serious: Yes (Other)
  Sender: FDA-Public Use
  Company Number: PHHY2011US11543

PATIENT
  Age: 15 Year
  Sex: Female

DRUGS (4)
  1. HYDROXYZINE [Suspect]
     Dosage: 50 MG, EVERY 8 HOURS PRN
  2. DIPHENHYDRAMINE [Suspect]
     Indication: ANXIETY
     Dosage: 400 MG/DAY
     Route: 030
  3. HYDROXYZINE [Suspect]
     Indication: DEPRESSION
     Dosage: 25 MG EVERY 8 HOURS PRN
     Route: 048
  4. HYDROXYZINE [Suspect]
     Dosage: ALTERNATING DOSE OF 50 AND 25 MG EVERY 6 HOURS

REACTIONS (11)
  - UPPER RESPIRATORY TRACT INFECTION [None]
  - AUTONOMIC NERVOUS SYSTEM IMBALANCE [None]
  - HEART RATE INCREASED [None]
  - NASAL CONGESTION [None]
  - BLOOD PRESSURE SYSTOLIC INCREASED [None]
  - DRUG DEPENDENCE [None]
  - NAUSEA [None]
  - OROPHARYNGEAL DISCOMFORT [None]
  - IRRITABILITY [None]
  - WITHDRAWAL SYNDROME [None]
  - DISTURBANCE IN ATTENTION [None]
